FAERS Safety Report 5801622-3 (Version None)
Quarter: 2008Q3

REPORT INFORMATION
  Report Type: 
  Country: None (occurrence: None)
  Receive Date: 20080707
  Receipt Date: 20080630
  Transmission Date: 20090109
  Serious: Yes (Hospitalization)
  Sender: FDA-Public Use
  Company Number: A0707482A

PATIENT
  Age: 51 Year
  Sex: Female

DRUGS (17)
  1. LAMICTAL [Suspect]
     Indication: BIPOLAR DISORDER
     Dosage: 50MG PER DAY
     Route: 048
     Dates: start: 20051101, end: 20051206
  2. PAXIL [Suspect]
     Indication: DEPRESSION
     Dosage: 20MG PER DAY
     Route: 048
     Dates: start: 19970101, end: 20010101
  3. LYRICA [Suspect]
     Indication: DRUG USE FOR UNKNOWN INDICATION
     Route: 065
  4. ZYPREXA [Suspect]
     Indication: DRUG USE FOR UNKNOWN INDICATION
     Route: 065
  5. ZANAFLEX [Concomitant]
     Dosage: 4MG AT NIGHT
  6. REQUIP [Concomitant]
  7. CYMBALTA [Concomitant]
     Dosage: 60MG PER DAY
  8. DICYCLOMINE [Concomitant]
  9. NEURONTIN [Concomitant]
     Dosage: 900MG AT NIGHT
  10. PROTONIX [Concomitant]
     Dosage: 40MG TWICE PER DAY
     Route: 048
  11. MAXZIDE [Concomitant]
  12. ESTRACE [Concomitant]
  13. MORPHINE [Concomitant]
     Dosage: 30MG AS REQUIRED
  14. LIDODERM [Concomitant]
  15. PROVIGIL [Concomitant]
     Dosage: 200MG TWICE PER DAY
  16. SEROQUEL [Concomitant]
  17. XANAX [Concomitant]
     Dosage: 1MG TWICE PER DAY

REACTIONS (17)
  - AGITATION [None]
  - AMBLYOPIA [None]
  - BLOOD POTASSIUM DECREASED [None]
  - CONVULSION [None]
  - DEHYDRATION [None]
  - DRUG HYPERSENSITIVITY [None]
  - ELECTROCARDIOGRAM ABNORMAL [None]
  - HALLUCINATION [None]
  - INSOMNIA [None]
  - LOSS OF CONSCIOUSNESS [None]
  - MENTAL STATUS CHANGES [None]
  - OEDEMA PERIPHERAL [None]
  - OVERDOSE [None]
  - PARALYSIS [None]
  - RASH [None]
  - VERTIGO [None]
  - VOMITING [None]
